FAERS Safety Report 18221446 (Version 1)
Quarter: 2020Q3

REPORT INFORMATION
  Report Type: Spontaneous
  Country: US (occurrence: US)
  Receive Date: 20200901
  Receipt Date: 20200901
  Transmission Date: 20201103
  Serious: Yes (Hospitalization)
  Sender: FDA-Public Use
  Company Number: None

PATIENT
  Age: 78 Year
  Sex: Female

DRUGS (7)
  1. MAGNESIUM [Concomitant]
     Active Substance: MAGNESIUM
  2. POTASSIUM [Concomitant]
     Active Substance: POTASSIUM
  3. LIPITOR [Concomitant]
     Active Substance: ATORVASTATIN CALCIUM
  4. CALCIUM + D3 [Concomitant]
     Active Substance: CALCIUM\CHOLECALCIFEROL
  5. KEPPRA [Concomitant]
     Active Substance: LEVETIRACETAM
  6. VITAMIN C [Concomitant]
     Active Substance: ASCORBIC ACID
  7. ILARIS [Suspect]
     Active Substance: CANAKINUMAB
     Indication: ARRHYTHMIA
     Dosage: ?          OTHER FREQUENCY:EVERY 8 WEEKS;?
     Route: 058
     Dates: start: 20160121

REACTIONS (1)
  - Bladder operation [None]

NARRATIVE: CASE EVENT DATE: 20200806
